FAERS Safety Report 19506532 (Version 1)
Quarter: 2021Q3

REPORT INFORMATION
  Report Type: Spontaneous
  Country: US (occurrence: US)
  Receive Date: 20210708
  Receipt Date: 20210708
  Transmission Date: 20211014
  Serious: Yes (Life-Threatening, Other)
  Sender: FDA-Public Use
  Company Number: None

PATIENT
  Age: 32 Year
  Sex: Female
  Weight: 56.25 kg

DRUGS (3)
  1. BUPROPION HCL SR 100MG, TWICE A DAY. SUB FOR WELLBUTRIN SR. ROUND BLUE [Suspect]
     Active Substance: BUPROPION HYDROCHLORIDE
     Indication: ANXIETY
     Dosage: ?          QUANTITY:60 TABLET(S);?
     Route: 048
  2. BUPROPION HCL SR 100MG, TWICE A DAY. SUB FOR WELLBUTRIN SR. ROUND BLUE [Suspect]
     Active Substance: BUPROPION HYDROCHLORIDE
     Indication: DEPRESSION
     Dosage: ?          QUANTITY:60 TABLET(S);?
     Route: 048
  3. BUPROPION HCL SR 100MG, TWICE A DAY. SUB FOR WELLBUTRIN SR. ROUND BLUE [Suspect]
     Active Substance: BUPROPION HYDROCHLORIDE
     Indication: POST-TRAUMATIC STRESS DISORDER
     Dosage: ?          QUANTITY:60 TABLET(S);?
     Route: 048

REACTIONS (7)
  - Anxiety [None]
  - Therapy change [None]
  - Autophobia [None]
  - Nausea [None]
  - Suicidal ideation [None]
  - Sensation of foreign body [None]
  - Anger [None]

NARRATIVE: CASE EVENT DATE: 20210701
